FAERS Safety Report 4486476-2 (Version None)
Quarter: 2004Q4

REPORT INFORMATION
  Report Type: 
  Country: None (occurrence: None)
  Receive Date: 20041026
  Receipt Date: 20041026
  Transmission Date: 20050328
  Serious: Yes (Death, Hospitalization)
  Sender: FDA-Public Use
  Company Number: None

PATIENT
  Age: 65 Year
  Sex: Female
  Weight: 50.8029 kg

DRUGS (8)
  1. AVASTIN [Suspect]
     Indication: PANCREATIC CARCINOMA
     Dosage: 10MG/KG DAY 1, DAY 15 INTRAVENOUS
     Route: 042
     Dates: start: 20041006, end: 20041006
  2. GLUCOTROL [Concomitant]
  3. XANAX [Concomitant]
  4. IRON SUPPLEMENT [Concomitant]
  5. CARAFATE [Concomitant]
  6. REGLAN [Concomitant]
  7. PEPSCID [Concomitant]
  8. NORVASC [Concomitant]

REACTIONS (6)
  - ABDOMINAL PAIN [None]
  - CARDIAC ARREST [None]
  - COMPUTERISED TOMOGRAM ABNORMAL [None]
  - DEHYDRATION [None]
  - NAUSEA [None]
  - VOMITING [None]
